FAERS Safety Report 10031848 (Version 1)
Quarter: 2014Q1

REPORT INFORMATION
  Report Type: Spontaneous
  Country: US (occurrence: US)
  Receive Date: 20140324
  Receipt Date: 20140324
  Transmission Date: 20141002
  Serious: No
  Sender: FDA-Public Use
  Company Number: US-BAYER-2014-043787

PATIENT
  Age: 53 Year
  Sex: Female
  Weight: 82.99 kg

DRUGS (1)
  1. ALEVE CAPLET [Suspect]
     Indication: TOOTHACHE
     Dosage: 1 AND 2 DF, BID
     Route: 048
     Dates: start: 20140315, end: 20140315

REACTIONS (2)
  - Inappropriate schedule of drug administration [None]
  - Drug ineffective [None]
